FAERS Safety Report 9289132 (Version 1)
Quarter: 2013Q2

REPORT INFORMATION
  Report Type: Spontaneous
  Country: CH (occurrence: CH)
  Receive Date: 20130514
  Receipt Date: 20130514
  Transmission Date: 20140414
  Serious: Yes (Other)
  Sender: FDA-Public Use
  Company Number: PHHY2013CH046518

PATIENT
  Sex: Female

DRUGS (16)
  1. METHOTREXATE [Suspect]
     Indication: LEUKAEMIA
     Dosage: 50 MG/M2, AT COURSE 1
     Route: 042
  2. METHOTREXATE [Interacting]
     Dosage: 109 MG/M2, AT COURSE 2
     Route: 042
  3. METHOTREXATE [Interacting]
     Dosage: 100 MG/M2, AT COURSE 3
     Route: 042
  4. METHOTREXATE [Interacting]
     Dosage: 22 MG/M2, AT COURSE 4,,5,6
     Route: 042
  5. METHOTREXATE [Interacting]
     Dosage: 10 MG, ON DAY ONE OF EACH COURSE
     Route: 037
  6. CHLORAL HYDRATE [Interacting]
     Indication: SEDATION
     Dosage: 67 MG/KG, BEFORE COURSE 1
  7. CHLORAL HYDRATE [Interacting]
     Dosage: 50 MG/KG, BEFORE COURSE 2
  8. CHLORAL HYDRATE [Interacting]
     Dosage: 100 MG/KG, BEFORE COURSE 3
  9. LEUCOVORIN CALCIUM [Concomitant]
  10. CHLORPROTHIXENE [Concomitant]
  11. NITROUS OXIDE [Concomitant]
  12. ALIZAPRIDE [Concomitant]
     Indication: ANTIEMETIC SUPPORTIVE CARE
  13. ONDANSETRON [Concomitant]
     Indication: ANTIEMETIC SUPPORTIVE CARE
  14. SODIUM BICARBONATE [Concomitant]
  15. MIDAZOLAM [Concomitant]
  16. PETHIDINE [Concomitant]

REACTIONS (3)
  - Drug clearance decreased [Unknown]
  - Drug interaction [Unknown]
  - Mucosal inflammation [Unknown]
